FAERS Safety Report 23604896 (Version 1)
Quarter: 2024Q1

REPORT INFORMATION
  Report Type: Spontaneous
  Country: FR (occurrence: FR)
  Receive Date: 20240307
  Receipt Date: 20240307
  Transmission Date: 20240410
  Serious: Yes (Hospitalization)
  Sender: FDA-Public Use
  Company Number: FR-SUN PHARMACEUTICAL INDUSTRIES LTD-2024RR-434968

PATIENT
  Age: 32 Year
  Sex: Female
  Weight: 58 kg

DRUGS (2)
  1. ZOPICLONE [Suspect]
     Active Substance: ZOPICLONE
     Indication: Product used for unknown indication
     Dosage: UP TO ONE PACKET PER WEEK
     Route: 048
     Dates: start: 202201
  2. ZOLPIDEM [Suspect]
     Active Substance: ZOLPIDEM TARTRATE
     Indication: Product used for unknown indication
     Dosage: UP TO ONE PACKET PER WEEK
     Route: 048
     Dates: start: 202201

REACTIONS (2)
  - Intentional product misuse [Not Recovered/Not Resolved]
  - Drug detoxification [Recovered/Resolved]

NARRATIVE: CASE EVENT DATE: 20220101
